FAERS Safety Report 17761955 (Version 3)
Quarter: 2020Q2

REPORT INFORMATION
  Report Type: Report from Study
  Country: BE (occurrence: BE)
  Receive Date: 20200508
  Receipt Date: 20200616
  Transmission Date: 20200714
  Serious: Yes (Hospitalization)
  Sender: FDA-Public Use
  Company Number: BE-EXELIXIS-XL18420029608

PATIENT
  Age: 85 Year
  Sex: Male

DRUGS (9)
  1. SIMVASTATINE EG [Concomitant]
     Active Substance: SIMVASTATIN
     Indication: HYPERLIPIDAEMIA
     Dosage: 40 MG, QD
  2. CABOZANTINIB [Suspect]
     Active Substance: CABOZANTINIB
     Indication: RENAL CELL CARCINOMA
     Dosage: 60 MG, QD
     Route: 048
     Dates: start: 20200401, end: 20200417
  3. UNI-DIAMICRON [Concomitant]
     Indication: DIABETES MELLITUS
     Dosage: 60 MG, BID
     Dates: start: 2015
  4. METFORMIN [Concomitant]
     Active Substance: METFORMIN HYDROCHLORIDE
     Indication: DIABETES MELLITUS
     Dosage: 85 MG, BID
     Dates: start: 2014
  5. D-CURE [Concomitant]
     Active Substance: CHOLECALCIFEROL
     Indication: VITAMIN D DEFICIENCY
     Dosage: 2500 UNITS, WEEKLY
     Dates: start: 2016
  6. MACROGOL PLUS EL EG 13.7 G [Concomitant]
     Indication: CONSTIPATION
     Dosage: 1 POUCH, QD
  7. ASAFLOW EG [Concomitant]
     Indication: PROPHYLAXIS
     Dosage: 100 MG, QD
     Dates: start: 2016
  8. COVERAM 5-5 MG [Concomitant]
     Indication: HYPERTENSION
     Dosage: 1 TABLET, QD
  9. JANUVIA [Concomitant]
     Active Substance: SITAGLIPTIN PHOSPHATE
     Indication: DIABETES MELLITUS
     Dosage: 25 MG, QD
     Dates: start: 2014

REACTIONS (2)
  - Urinary tract infection [Recovered/Resolved]
  - General physical health deterioration [Recovered/Resolved]

NARRATIVE: CASE EVENT DATE: 20200417
